FAERS Safety Report 21862982 (Version 1)
Quarter: 2023Q1

REPORT INFORMATION
  Report Type: Spontaneous
  Country: US (occurrence: US)
  Receive Date: 20230114
  Receipt Date: 20230114
  Transmission Date: 20230417
  Serious: No
  Sender: FDA-Public Use
  Company Number: US-AMGEN-USASP2023005573

PATIENT
  Age: 59 Year
  Sex: Female

DRUGS (10)
  1. OTEZLA [Suspect]
     Active Substance: APREMILAST
     Indication: Psoriasis
     Dosage: 30 MILLIGRAM, BID
     Route: 048
     Dates: start: 20220416
  2. ALBUTEROL [Concomitant]
     Active Substance: ALBUTEROL
     Dosage: UNK
  3. ALPRAZOLAM [Concomitant]
     Active Substance: ALPRAZOLAM
     Dosage: 0.5 MILLIGRAM
  4. CICLOPIROX [Concomitant]
     Active Substance: CICLOPIROX
     Dosage: 1 PERCENT
  5. CLOBETASOL [Concomitant]
     Active Substance: CLOBETASOL
     Dosage: 0.5 PERCENT
  6. Fluocin [Concomitant]
     Dosage: 0.01 PERCENT
     Route: 058
  7. KENALOG [Concomitant]
     Active Substance: TRIAMCINOLONE ACETONIDE
     Dosage: 40 MILLIGRAM PER MILLILITRE
  8. ROSUVASTATIN [Concomitant]
     Active Substance: ROSUVASTATIN
     Dosage: 5 MILLIGRAM
  9. TRETINOIN [Concomitant]
     Active Substance: TRETINOIN
     Dosage: 0.05 PERCENT
  10. TRETINOIN [Concomitant]
     Active Substance: TRETINOIN
     Dosage: 0.01 PERCENT

REACTIONS (1)
  - Psoriasis [Not Recovered/Not Resolved]
